FAERS Safety Report 6391342-1 (Version None)
Quarter: 2009Q4

REPORT INFORMATION
  Report Type: 
  Country: None (occurrence: None)
  Receive Date: 20091007
  Receipt Date: 20091005
  Transmission Date: 20100525
  Serious: Yes (Hospitalization)
  Sender: FDA-Public Use
  Company Number: US-TEVA-207813USA

PATIENT
  Sex: Female

DRUGS (3)
  1. AMPHETAMINES [Suspect]
     Route: 048
     Dates: start: 20010101
  2. ADALIMUMAB [Suspect]
     Dosage: 40MG/.08ML PREFILLED SYRINGE
     Dates: start: 20080101
  3. OBETROL [Concomitant]

REACTIONS (10)
  - ARTHRALGIA [None]
  - ARTHRITIS [None]
  - BLISTER [None]
  - HEADACHE [None]
  - HEART RATE DECREASED [None]
  - HYPERSENSITIVITY [None]
  - INFLUENZA [None]
  - LOCAL SWELLING [None]
  - PAIN [None]
  - PSORIASIS [None]
